FAERS Safety Report 20921257 (Version 1)
Quarter: 2022Q2

REPORT INFORMATION
  Report Type: Spontaneous
  Country: None (occurrence: CA)
  Receive Date: 20220606
  Receipt Date: 20220606
  Transmission Date: 20220721
  Serious: Yes (Hospitalization)
  Sender: FDA-Public Use
  Company Number: CA-B.Braun Medical Inc.-2129516

PATIENT

DRUGS (17)
  1. BUPIVACAINE HYDROCHLORIDE WITH DEXTROSE [Suspect]
     Active Substance: BUPIVACAINE HYDROCHLORIDE
  2. ASPIRIN [Suspect]
     Active Substance: ASPIRIN
  3. AZATHIOPRINE [Suspect]
     Active Substance: AZATHIOPRINE
  4. BUPIVACAINE HYDROCHLORIDE [Suspect]
     Active Substance: BUPIVACAINE HYDROCHLORIDE
  5. CALCIUM CHLORIDE\POTASSIUM CHLORIDE\SODIUM LACTATE [Suspect]
     Active Substance: CALCIUM CHLORIDE\POTASSIUM CHLORIDE\SODIUM LACTATE
  6. CARBETOCIN [Suspect]
     Active Substance: CARBETOCIN
  7. EPINEPHRINE [Suspect]
     Active Substance: EPINEPHRINE
  8. ESCITALOPRAM [Suspect]
     Active Substance: ESCITALOPRAM OXALATE
  9. FENTANYL CITRATE [Suspect]
     Active Substance: FENTANYL CITRATE
  10. LANSOPRAZOLE [Suspect]
     Active Substance: LANSOPRAZOLE
  11. LIDOCAINE HYDROCHLORIDE [Suspect]
     Active Substance: LIDOCAINE HYDROCHLORIDE
  12. METHYLDOPA [Suspect]
     Active Substance: METHYLDOPA
  13. MORPHINE SULFATE [Suspect]
     Active Substance: MORPHINE SULFATE
  14. PHENYLEPHRINE HYDROCHLORIDE [Suspect]
     Active Substance: PHENYLEPHRINE HYDROCHLORIDE
  15. ALBUTEROL [Suspect]
     Active Substance: ALBUTEROL
  16. TACROLIMUS [Suspect]
     Active Substance: TACROLIMUS
  17. TINZAPARIN [Suspect]
     Active Substance: TINZAPARIN

REACTIONS (2)
  - Maternal exposure timing unspecified [Unknown]
  - Premature baby [Unknown]
